FAERS Safety Report 5073174-X (Version None)
Quarter: 2006Q3

REPORT INFORMATION
  Report Type: 
  Country: None (occurrence: None)
  Receive Date: 20060803
  Receipt Date: 20060724
  Transmission Date: 20061208
  Serious: Yes (Death)
  Sender: FDA-Public Use
  Company Number: OMPQ-NO-0608L-1243

PATIENT
  Age: 80 Year
  Sex: Female

DRUGS (3)
  1. OMNIPAQUE 140 [Suspect]
     Indication: PULMONARY EMBOLISM
     Dosage: IV
     Route: 042
  2. BETA-BLOCKER [Concomitant]
  3. CALCIUM-CHANNEL ANTAGONIST [Concomitant]

REACTIONS (6)
  - ACUTE RESPIRATORY FAILURE [None]
  - CARDIAC ARREST [None]
  - CARDIOMEGALY [None]
  - COMPUTERISED TOMOGRAM ABNORMAL [None]
  - PLEURAL EFFUSION [None]
  - PULMONARY OEDEMA [None]
